FAERS Safety Report 9270016 (Version 1)
Quarter: 2013Q2

REPORT INFORMATION
  Report Type: Spontaneous
  Country: US (occurrence: None)
  Receive Date: 20130502
  Receipt Date: 20130502
  Transmission Date: 20140414
  Serious: Yes (Death, Other)
  Sender: FDA-Public Use
  Company Number: FK201301223

PATIENT
  Sex: 0

DRUGS (3)
  1. GANCICLOVIR [Suspect]
     Indication: CYTOMEGALOVIRUS INFECTION
  2. FOSCARNET [Suspect]
     Indication: CYTOMEGALOVIRUS INFECTION
  3. CIDOFOVIR [Suspect]
     Indication: CYTOMEGALOVIRUS INFECTION

REACTIONS (2)
  - Renal failure [None]
  - Treatment failure [None]
